FAERS Safety Report 6306621-3 (Version None)
Quarter: 2009Q3

REPORT INFORMATION
  Report Type: 
  Country: None (occurrence: None)
  Receive Date: 20090812
  Receipt Date: 20090807
  Transmission Date: 20100115
  Serious: Yes (Hospitalization)
  Sender: FDA-Public Use
  Company Number: A0801513A

PATIENT
  Sex: Female
  Weight: 55 kg

DRUGS (5)
  1. LAPATINIB [Suspect]
     Dosage: 1250MG PER DAY
     Route: 048
     Dates: start: 20090729
  2. DOCETAXEL [Suspect]
     Dosage: 122MG EVERY 3 WEEKS
     Route: 042
     Dates: start: 20090729
  3. ZOPLICONE [Concomitant]
     Indication: INSOMNIA
     Route: 048
     Dates: start: 20090717
  4. PAMIDRONATE DISODIUM [Concomitant]
     Dates: start: 20090728, end: 20090728
  5. ONDANSETRON [Concomitant]
     Indication: NAUSEA
     Dates: start: 20090806, end: 20090806

REACTIONS (2)
  - DIARRHOEA [None]
  - FEBRILE NEUTROPENIA [None]
